FAERS Safety Report 8337061-3 (Version None)
Quarter: 2012Q2

REPORT INFORMATION
  Report Type: 
  Country: None (occurrence: None)
  Receive Date: 20120504
  Receipt Date: 20120420
  Transmission Date: 20120825
  Serious: Yes (Death, Hospitalization)
  Sender: FDA-Public Use
  Company Number: DE-RANBAXY-2012US-55906

PATIENT

DRUGS (8)
  1. APROVEL [Concomitant]
     Indication: PRODUCT USED FOR UNKNOWN INDICATION
     Route: 065
  2. POLYETHYLENE GLYCOL [Concomitant]
     Indication: PRODUCT USED FOR UNKNOWN INDICATION
     Route: 065
  3. AMOXICILLIN [Suspect]
     Indication: PEPTIC ULCER
     Route: 048
     Dates: start: 20120307
  4. CLARITHROMYCIN [Suspect]
     Indication: PEPTIC ULCER
     Route: 048
     Dates: start: 20120307
  5. FLAGYL [Suspect]
     Indication: PEPTIC ULCER
     Dosage: UNK
     Route: 048
     Dates: start: 20120307, end: 20120309
  6. FLAGYL [Suspect]
     Dosage: UNK
     Route: 042
     Dates: start: 20120309, end: 20120315
  7. AMLODIPINE BESYLATE [Concomitant]
     Indication: PRODUCT USED FOR UNKNOWN INDICATION
     Route: 065
  8. PANTOPRAZOLE [Suspect]
     Indication: PEPTIC ULCER
     Dosage: UNK
     Route: 048
     Dates: start: 20120307

REACTIONS (1)
  - ORGANISING PNEUMONIA [None]
